FAERS Safety Report 9343673 (Version 4)
Quarter: 2013Q3

REPORT INFORMATION
  Report Type: Spontaneous
  Country: US (occurrence: US)
  Receive Date: 20130612
  Receipt Date: 20130717
  Transmission Date: 20140515
  Serious: No
  Sender: FDA-Public Use
  Company Number: US-009507513-1306USA004037

PATIENT
  Age: 19 Year
  Sex: Female
  Weight: 62.13 kg

DRUGS (1)
  1. IMPLANON [Suspect]
     Indication: CONTRACEPTION
     Dosage: 1 DF, UNK
     Route: 059
     Dates: start: 20111221

REACTIONS (4)
  - Unintended pregnancy [Unknown]
  - Medical device complication [Unknown]
  - Medical device complication [Unknown]
  - Drug dose omission [Unknown]
